FAERS Safety Report 22289012 (Version 2)
Quarter: 2023Q2

REPORT INFORMATION
  Report Type: Spontaneous
  Country: DE (occurrence: DE)
  Receive Date: 20230505
  Receipt Date: 20230530
  Transmission Date: 20230722
  Serious: Yes (Hospitalization, Other)
  Sender: FDA-Public Use
  Company Number: DE-DCGMA-23200296

PATIENT
  Sex: Female
  Weight: 60 kg

DRUGS (2)
  1. FENTANYL [Suspect]
     Active Substance: FENTANYL
     Indication: Platelet dysfunction
  2. MORPHINE [Suspect]
     Active Substance: MORPHINE
     Indication: Platelet dysfunction

REACTIONS (6)
  - Arrhythmia [Unknown]
  - Syncope [Unknown]
  - Blood pressure decreased [Unknown]
  - Dizziness [Unknown]
  - Somnolence [Unknown]
  - Product use in unapproved indication [Unknown]
